FAERS Safety Report 16018613 (Version 2)
Quarter: 2019Q1

REPORT INFORMATION
  Report Type: Spontaneous
  Country: DE (occurrence: DE)
  Receive Date: 20190228
  Receipt Date: 20190326
  Transmission Date: 20190418
  Serious: Yes (Other)
  Sender: FDA-Public Use
  Company Number: DE-TEVA-2019-DE-1015384

PATIENT
  Age: 63 Year
  Sex: Male

DRUGS (1)
  1. EMTRICITABIN/TENOFOVIRDISOPROXIL-RATIOPHARM 200MG/245MG FILMTABLETTEN [Suspect]
     Active Substance: EMTRICITABINE\TENOFOVIR DISOPROXIL
     Dosage: USED FOR A HALF YEAR, CONTAINS 200 MG EMTRICITABINE AND 245 MG TENOFOVIRDISOPROXIL
     Route: 048
     Dates: start: 2018, end: 201902

REACTIONS (5)
  - Rash pruritic [Not Recovered/Not Resolved]
  - Rash macular [Not Recovered/Not Resolved]
  - Rash erythematous [Not Recovered/Not Resolved]
  - Rash pustular [Not Recovered/Not Resolved]
  - Impaired healing [Not Recovered/Not Resolved]

NARRATIVE: CASE EVENT DATE: 201901
